FAERS Safety Report 5099135-2 (Version None)
Quarter: 2006Q3

REPORT INFORMATION
  Report Type: 
  Country: None (occurrence: None)
  Receive Date: 20060731
  Receipt Date: 20051219
  Transmission Date: 20061208
  Serious: Yes (Other)
  Sender: FDA-Public Use
  Company Number: 220407

PATIENT
  Age: 36 Year
  Sex: Female

DRUGS (13)
  1. HERCEPTIN [Suspect]
     Indication: BREAST CANCER METASTATIC
     Dosage: 2 MG/KG, 1/WEEK, INTRAVENOUS
     Route: 042
     Dates: start: 20040401, end: 20051024
  2. AVASTIN [Suspect]
     Indication: BREAST CANCER METASTATIC
     Dosage: 5 MG/KG, QOW, INTRAVENOUS
     Route: 042
     Dates: start: 20050906
  3. TAXOL [Concomitant]
  4. LISINOPRIL [Concomitant]
  5. ASPIRIN [Concomitant]
  6. FENTANYL PATCH (FENTANYL CITRATE) [Concomitant]
  7. NORTRIPTYLINE HCL [Concomitant]
  8. NEURONTIN [Concomitant]
  9. PROTONIX [Concomitant]
  10. PRAVASTATIN [Concomitant]
  11. NITROGLYCERIN [Concomitant]
  12. PROVIGIL [Concomitant]
  13. ZOMETA [Concomitant]

REACTIONS (1)
  - EJECTION FRACTION DECREASED [None]
